FAERS Safety Report 24412925 (Version 2)
Quarter: 2024Q4

REPORT INFORMATION
  Report Type: Report from Study
  Country: GB (occurrence: GB)
  Receive Date: 20241008
  Receipt Date: 20241112
  Transmission Date: 20250114
  Serious: Yes (Other)
  Sender: NOVARTIS
  Company Number: GB-002147023-NVSC2024GB026732

PATIENT
  Sex: Female

DRUGS (1)
  1. KESIMPTA [Suspect]
     Active Substance: OFATUMUMAB
     Indication: Multiple sclerosis
     Dosage: 20 MG, QMO
     Route: 058
     Dates: start: 20231206

REACTIONS (11)
  - Multiple sclerosis [Unknown]
  - Visual impairment [Unknown]
  - Headache [Unknown]
  - Lower respiratory tract infection [Unknown]
  - Menstruation delayed [Unknown]
  - Chest discomfort [Unknown]
  - Cluster headache [Unknown]
  - Burning sensation [Unknown]
  - Paraesthesia [Unknown]
  - Pain in extremity [Unknown]
  - Pain [Unknown]
